FAERS Safety Report 23518668 (Version 1)
Quarter: 2024Q1

REPORT INFORMATION
  Report Type: Spontaneous
  Country: SA (occurrence: SA)
  Receive Date: 20240213
  Receipt Date: 20240213
  Transmission Date: 20240409
  Serious: Yes (Other)
  Sender: FDA-Public Use
  Company Number: SA-002147023-NVSC2024SA029622

PATIENT

DRUGS (1)
  1. KISQALI [Suspect]
     Active Substance: RIBOCICLIB
     Indication: Adjuvant therapy
     Dosage: 400 MG
     Route: 065

REACTIONS (2)
  - Febrile neutropenia [Unknown]
  - Off label use [Unknown]
